FAERS Safety Report 4686756-1 (Version None)
Quarter: 2005Q2

REPORT INFORMATION
  Report Type: 
  Country: None (occurrence: None)
  Receive Date: 20050606
  Receipt Date: 20050519
  Transmission Date: 20051028
  Serious: Yes (Other)
  Sender: FDA-Public Use
  Company Number: GBS050417204

PATIENT
  Age: 62 Year
  Sex: Female
  Weight: 72 kg

DRUGS (7)
  1. YENTREVE (DULOXETINE HYDROCHLORIDE) [Suspect]
     Indication: URINARY INCONTINENCE
     Dosage: 40 MG/2 DAY
     Dates: start: 20041101
  2. FENTANYL [Concomitant]
  3. PROPOFOL [Concomitant]
  4. SUXAMETHONIUM [Concomitant]
  5. ATRACURIUM [Concomitant]
  6. CEFUROXIME [Concomitant]
  7. ONDANSETRON [Concomitant]

REACTIONS (6)
  - BLOOD PRESSURE SYSTOLIC INCREASED [None]
  - HEART RATE DECREASED [None]
  - HYPOTENSION [None]
  - OVERDOSE [None]
  - PROCEDURAL COMPLICATION [None]
  - UMBILICAL HERNIA REPAIR [None]
